FAERS Safety Report 10821009 (Version 3)
Quarter: 2015Q2

REPORT INFORMATION
  Report Type: Spontaneous
  Country: BR (occurrence: BR)
  Receive Date: 20150218
  Receipt Date: 20150430
  Transmission Date: 20150821
  Serious: Yes (Death)
  Sender: FDA-Public Use
  Company Number: BR-ABBVIE-15P-020-1348868-00

PATIENT
  Age: 16 Year
  Sex: Female
  Weight: 46 kg

DRUGS (2)
  1. DEPAKENE [Suspect]
     Active Substance: VALPROIC ACID
     Route: 048
     Dates: start: 200808
  2. DEPAKENE [Suspect]
     Active Substance: VALPROIC ACID
     Indication: NEURONAL CEROID LIPOFUSCINOSIS
     Dosage: 4 MILLILITER
     Route: 048
     Dates: start: 2008

REACTIONS (6)
  - Choking [Fatal]
  - Vomiting [Fatal]
  - Cardiac arrest [Fatal]
  - Off label use [Unknown]
  - Respiratory arrest [Fatal]
  - Aspiration [Fatal]

NARRATIVE: CASE EVENT DATE: 2008
